FAERS Safety Report 5102864-5 (Version None)
Quarter: 2006Q3

REPORT INFORMATION
  Report Type: 
  Country: None (occurrence: None)
  Receive Date: 20060912
  Receipt Date: 20060904
  Transmission Date: 20061208
  Serious: Yes (Hospitalization)
  Sender: FDA-Public Use
  Company Number: DE-SANOFI-SYNTHELABO-F04200600184

PATIENT
  Sex: Female

DRUGS (5)
  1. ZOFRAN [Concomitant]
     Indication: CHEMOTHERAPY
     Dosage: 8 MG
     Route: 042
     Dates: start: 20060521
  2. DEXTROSE 5% [Concomitant]
     Indication: DRUG THERAPY
     Dosage: 100 ML
     Route: 042
     Dates: start: 20060521
  3. ELOXATIN [Suspect]
     Indication: RECTOSIGMOID CANCER STAGE IV
     Route: 041
     Dates: start: 20060522, end: 20060522
  4. VITAMIN B-12 [Concomitant]
     Indication: DRUG USE FOR UNKNOWN INDICATION
     Dosage: 1000 MG
     Route: 042
     Dates: start: 20060521
  5. XELODA [Suspect]
     Route: 048
     Dates: start: 20060522, end: 20060604

REACTIONS (6)
  - DIARRHOEA [None]
  - DUODENITIS [None]
  - EROSIVE DUODENITIS [None]
  - GASTRIC ULCER [None]
  - HYPOKALAEMIA [None]
  - VOMITING [None]
